FAERS Safety Report 17584617 (Version 1)
Quarter: 2020Q1

REPORT INFORMATION
  Report Type: Spontaneous
  Country: US (occurrence: US)
  Receive Date: 20200323
  Receipt Date: 20200323
  Transmission Date: 20200409
  Serious: Yes (Other)
  Sender: FDA-Public Use
  Company Number: None

PATIENT
  Age: 78 Year
  Sex: Female
  Weight: 69.85 kg

DRUGS (5)
  1. MULTI VITAMIN [Concomitant]
     Active Substance: VITAMINS
  2. LEVOTHYROXINE 112MG [Concomitant]
     Active Substance: LEVOTHYROXINE SODIUM
  3. SULFAMETHOXAZOLE AND TRIMETHOPRIM DS 800-160MG [Suspect]
     Active Substance: SULFAMETHOXAZOLE\TRIMETHOPRIM
  4. LISINOPRIL 10MG [Concomitant]
     Active Substance: LISINOPRIL
  5. CALCIUM 600 +D3 [Concomitant]

REACTIONS (4)
  - Dyspnoea [None]
  - Middle insomnia [None]
  - Swollen tongue [None]
  - Dysphagia [None]

NARRATIVE: CASE EVENT DATE: 20200307
